FAERS Safety Report 20054998 (Version 1)
Quarter: 2021Q4

REPORT INFORMATION
  Report Type: Spontaneous
  Country: US (occurrence: US)
  Receive Date: 20211110
  Receipt Date: 20211110
  Transmission Date: 20220303
  Serious: No
  Sender: FDA-Public Use
  Company Number: US-PFIZER INC-202100958552

PATIENT
  Sex: Male

DRUGS (2)
  1. AMINOPHYLLINE [Suspect]
     Active Substance: AMINOPHYLLINE
     Indication: Malaise
     Dosage: UNK
  2. LEXISCAN [Suspect]
     Active Substance: REGADENOSON
     Dosage: UNK

REACTIONS (2)
  - Dyspnoea [Unknown]
  - Malaise [Unknown]
